FAERS Safety Report 8816422 (Version 1)
Quarter: 2012Q4

REPORT INFORMATION
  Report Type: Spontaneous
  Country: US (occurrence: None)
  Receive Date: 20120928
  Receipt Date: 20120928
  Transmission Date: 20130627
  Serious: Yes (Other)
  Sender: FDA-Public Use
  Company Number: None

PATIENT
  Age: 25 Year
  Sex: Male

DRUGS (1)
  1. MIRTAZAPINE [Suspect]
     Indication: MAJOR DEPRESSION
     Route: 048
     Dates: start: 20120713, end: 20120716

REACTIONS (19)
  - Drug administration error [None]
  - Tremor [None]
  - Hyperhidrosis [None]
  - Blood pressure increased [None]
  - Haematemesis [None]
  - Lymphocyte count decreased [None]
  - Lymphocyte percentage decreased [None]
  - Monocyte percentage increased [None]
  - Eosinophil percentage increased [None]
  - Blood bilirubin increased [None]
  - Blood chloride decreased [None]
  - Blood cholesterol increased [None]
  - High density lipoprotein increased [None]
  - Therapeutic response decreased [None]
  - Red blood cell count decreased [None]
  - Haematocrit decreased [None]
  - Neutropenia [None]
  - Leukopenia [None]
  - Thrombocytopenia [None]
